FAERS Safety Report 21325486 (Version 2)
Quarter: 2022Q3

REPORT INFORMATION
  Report Type: Report from Study
  Country: US (occurrence: US)
  Receive Date: 20220912
  Receipt Date: 20220930
  Transmission Date: 20221026
  Serious: No
  Sender: FDA-Public Use
  Company Number: US-SA-SAC20220909001712

PATIENT
  Age: 42 Year
  Sex: Female

DRUGS (19)
  1. TERIFLUNOMIDE [Suspect]
     Active Substance: TERIFLUNOMIDE
     Indication: Multiple sclerosis
     Dosage: 14 MG, QD
     Route: 048
     Dates: start: 20211113
  2. QULIPTA [Concomitant]
     Active Substance: ATOGEPANT
  3. CYCLOBENZAPRINE [Concomitant]
     Active Substance: CYCLOBENZAPRINE
  4. PEPCID [Concomitant]
     Active Substance: FAMOTIDINE
  5. VITAMIN D3 [Concomitant]
     Active Substance: CHOLECALCIFEROL
  6. FIORICET [Concomitant]
     Active Substance: ACETAMINOPHEN\BUTALBITAL\CAFFEINE
  7. OMEPRAZOLE [Concomitant]
     Active Substance: OMEPRAZOLE
  8. BUPROPION [Concomitant]
     Active Substance: BUPROPION
  9. MELOXICAM [Concomitant]
     Active Substance: MELOXICAM
  10. FOLIC ACID [Concomitant]
     Active Substance: FOLIC ACID
  11. PROPRANOLOL [Concomitant]
     Active Substance: PROPRANOLOL HYDROCHLORIDE
  12. HYDROXYCHLOROQUINE [Concomitant]
     Active Substance: HYDROXYCHLOROQUINE
  13. METHOTREXATE [Concomitant]
     Active Substance: METHOTREXATE
  14. TRAMADOL [Concomitant]
     Active Substance: TRAMADOL
  15. OXYCODONE [Concomitant]
     Active Substance: OXYCODONE
  16. BACLOFEN [Concomitant]
     Active Substance: BACLOFEN
  17. VITAMINS NOS [Concomitant]
     Active Substance: VITAMINS
  18. OCELLA [Concomitant]
     Active Substance: DROSPIRENONE\ETHINYL ESTRADIOL
  19. UBRELVY [Concomitant]
     Active Substance: UBROGEPANT

REACTIONS (5)
  - Dizziness [Not Recovered/Not Resolved]
  - Malaise [Not Recovered/Not Resolved]
  - Asthenia [Not Recovered/Not Resolved]
  - Vomiting [Not Recovered/Not Resolved]
  - Diarrhoea [Not Recovered/Not Resolved]

NARRATIVE: CASE EVENT DATE: 20220908
